FAERS Safety Report 4954703-0 (Version None)
Quarter: 2006Q1

REPORT INFORMATION
  Report Type: 
  Country: None (occurrence: None)
  Receive Date: 20060127
  Receipt Date: 20050912
  Transmission Date: 20060701
  Serious: Yes (Hospitalization)
  Sender: FDA-Public Use
  Company Number: 2005-US-00525

PATIENT
  Age: 38 Year
  Sex: Female

DRUGS (1)
  1. CLOZAPINE [Suspect]
     Dosage: 900 MG, QD, ORAL
     Route: 048
     Dates: start: 19991001, end: 20050801

REACTIONS (1)
  - ORTHOPEDIC PROCEDURE [None]
